FAERS Safety Report 6403795-0 (Version None)
Quarter: 2009Q4

REPORT INFORMATION
  Report Type: 
  Country: None (occurrence: None)
  Receive Date: 20091016
  Receipt Date: 20091009
  Transmission Date: 20100525
  Serious: Yes (Other)
  Sender: FDA-Public Use
  Company Number: DE-JNJFOC-20091004746

PATIENT
  Age: 37 Year
  Sex: Female

DRUGS (1)
  1. RISPERIDONE [Suspect]
     Indication: DRUG USE FOR UNKNOWN INDICATION
     Route: 065

REACTIONS (4)
  - AMENORRHOEA [None]
  - HYPERPROLACTINAEMIA [None]
  - LYMPHOCYTIC HYPOPHYSITIS [None]
  - PSYCHOTIC DISORDER [None]
